FAERS Safety Report 10733842 (Version 1)
Quarter: 2015Q1

REPORT INFORMATION
  Report Type: Spontaneous
  Country: US (occurrence: US)
  Receive Date: 20150123
  Receipt Date: 20150123
  Transmission Date: 20150721
  Serious: No
  Sender: FDA-Public Use
  Company Number: US-BRACCO-010658

PATIENT
  Age: 67 Year
  Sex: Female

DRUGS (2)
  1. CARDIOGEN-82 [Suspect]
     Active Substance: RUBIDIUM CHLORIDE RB-82
     Indication: POSITRON EMISSION TOMOGRAM
     Route: 042
  2. DEXTROSE. [Concomitant]
     Active Substance: DEXTROSE
     Route: 042

REACTIONS (2)
  - Wrong technique in drug usage process [Unknown]
  - No adverse event [Unknown]
